FAERS Safety Report 20657400 (Version 3)
Quarter: 2025Q2

REPORT INFORMATION
  Report Type: Spontaneous
  Country: PL (occurrence: PL)
  Receive Date: 20220331
  Receipt Date: 20250527
  Transmission Date: 20250717
  Serious: Yes (Hospitalization, Other)
  Sender: ROCHE
  Company Number: PL-KRKA-PL2022K02860LIT

PATIENT
  Age: 17 Year
  Sex: Female

DRUGS (48)
  1. RITUXIMAB [Suspect]
     Active Substance: RITUXIMAB
     Indication: Epstein-Barr virus infection reactivation
     Dosage: 375 MG/M2, PER WEEK
     Route: 065
  2. RITUXIMAB [Suspect]
     Active Substance: RITUXIMAB
     Indication: Graft versus host disease
  3. RITUXIMAB [Suspect]
     Active Substance: RITUXIMAB
     Indication: Philadelphia chromosome positive
  4. RITUXIMAB [Suspect]
     Active Substance: RITUXIMAB
     Indication: Immunosuppression
  5. RITUXIMAB [Suspect]
     Active Substance: RITUXIMAB
     Indication: Acute lymphocytic leukaemia
  6. TACROLIMUS [Suspect]
     Active Substance: TACROLIMUS
     Indication: Epstein-Barr virus infection reactivation
     Route: 065
  7. TACROLIMUS [Suspect]
     Active Substance: TACROLIMUS
     Indication: Philadelphia chromosome positive
  8. TACROLIMUS [Suspect]
     Active Substance: TACROLIMUS
     Indication: Graft versus host disease
  9. TACROLIMUS [Suspect]
     Active Substance: TACROLIMUS
     Indication: Acute lymphocytic leukaemia
  10. TACROLIMUS [Suspect]
     Active Substance: TACROLIMUS
     Indication: Immunosuppression
  11. CYCLOSPORINE [Suspect]
     Active Substance: CYCLOSPORINE
     Indication: Graft versus host disease
     Route: 065
  12. CYCLOSPORINE [Suspect]
     Active Substance: CYCLOSPORINE
     Indication: Immunosuppression
  13. CYCLOSPORINE [Suspect]
     Active Substance: CYCLOSPORINE
     Indication: Philadelphia chromosome positive
  14. CYCLOSPORINE [Suspect]
     Active Substance: CYCLOSPORINE
     Indication: Acute lymphocytic leukaemia
  15. CYCLOSPORINE [Suspect]
     Active Substance: CYCLOSPORINE
     Indication: Epstein-Barr virus infection reactivation
  16. THYMOGLOBULINE [Suspect]
     Active Substance: LAPINE T-LYMPHOCYTE IMMUNE GLOBULIN
     Indication: Lymphodepletion
     Route: 065
  17. THYMOGLOBULINE [Suspect]
     Active Substance: LAPINE T-LYMPHOCYTE IMMUNE GLOBULIN
     Indication: Immunosuppression
  18. THYMOGLOBULINE [Suspect]
     Active Substance: LAPINE T-LYMPHOCYTE IMMUNE GLOBULIN
     Indication: Graft versus host disease
  19. THYMOGLOBULINE [Suspect]
     Active Substance: LAPINE T-LYMPHOCYTE IMMUNE GLOBULIN
     Indication: Philadelphia chromosome positive
  20. THYMOGLOBULINE [Suspect]
     Active Substance: LAPINE T-LYMPHOCYTE IMMUNE GLOBULIN
     Indication: Acute lymphocytic leukaemia
  21. THYMOGLOBULINE [Suspect]
     Active Substance: LAPINE T-LYMPHOCYTE IMMUNE GLOBULIN
     Indication: Epstein-Barr virus infection reactivation
  22. FLUDARABINE [Suspect]
     Active Substance: FLUDARABINE PHOSPHATE
     Indication: Philadelphia chromosome positive
     Dosage: 30 MG/M2, PER DAY
     Route: 065
  23. FLUDARABINE [Suspect]
     Active Substance: FLUDARABINE PHOSPHATE
     Indication: Immunosuppression
  24. FLUDARABINE [Suspect]
     Active Substance: FLUDARABINE PHOSPHATE
     Indication: Acute lymphocytic leukaemia
  25. FLUDARABINE [Suspect]
     Active Substance: FLUDARABINE PHOSPHATE
     Indication: Epstein-Barr virus infection reactivation
  26. FLUDARABINE [Suspect]
     Active Substance: FLUDARABINE PHOSPHATE
     Indication: Graft versus host disease
  27. IMATINIB [Suspect]
     Active Substance: IMATINIB
     Indication: Acute lymphocytic leukaemia
     Route: 065
  28. IMATINIB [Suspect]
     Active Substance: IMATINIB
     Indication: Epstein-Barr virus infection reactivation
  29. IMATINIB [Suspect]
     Active Substance: IMATINIB
     Indication: Immunosuppression
  30. IMATINIB [Suspect]
     Active Substance: IMATINIB
     Indication: Philadelphia chromosome positive
  31. IMATINIB [Suspect]
     Active Substance: IMATINIB
     Indication: Graft versus host disease
  32. TREOSULFAN [Suspect]
     Active Substance: TREOSULFAN
     Indication: Philadelphia chromosome positive
     Dosage: 14 G/M2 DAILY FOR 3 DAYS
     Route: 065
  33. TREOSULFAN [Suspect]
     Active Substance: TREOSULFAN
     Indication: Acute lymphocytic leukaemia
  34. TREOSULFAN [Suspect]
     Active Substance: TREOSULFAN
     Indication: Graft versus host disease
  35. TREOSULFAN [Suspect]
     Active Substance: TREOSULFAN
     Indication: Epstein-Barr virus infection reactivation
  36. TREOSULFAN [Suspect]
     Active Substance: TREOSULFAN
     Indication: Immunosuppression
  37. GANCICLOVIR [Concomitant]
     Active Substance: GANCICLOVIR
     Indication: Infection prophylaxis
     Dosage: 10 MG/KG, PER DAY
     Route: 065
  38. GANCICLOVIR [Concomitant]
     Active Substance: GANCICLOVIR
     Dosage: 5 MG/KG, QD
     Route: 065
  39. IMMUNE GLOBULIN [Concomitant]
     Indication: Infection prophylaxis
  40. PENICILLIN V [Concomitant]
     Active Substance: PENICILLIN V
     Indication: Infection prophylaxis
  41. CLINDAMYCIN [Concomitant]
     Active Substance: CLINDAMYCIN
  42. VANCOMYCIN [Concomitant]
     Active Substance: VANCOMYCIN
     Indication: Staphylococcal bacteraemia
  43. COTRIMOXAZOLE [Concomitant]
     Active Substance: SULFAMETHOXAZOLE\TRIMETHOPRIM
     Indication: Infection prophylaxis
  44. CIDOFOVIR [Concomitant]
     Active Substance: CIDOFOVIR
     Indication: BK polyomavirus test positive
  45. POSACONAZOLE [Concomitant]
     Active Substance: POSACONAZOLE
     Indication: Febrile neutropenia
  46. MEROPENEM [Concomitant]
     Active Substance: MEROPENEM
     Indication: Febrile neutropenia
  47. FLUCONAZOLE [Concomitant]
     Active Substance: FLUCONAZOLE
     Indication: Infection prophylaxis
  48. FOSCARNET [Concomitant]
     Active Substance: FOSCARNET
     Indication: Cytomegalovirus infection reactivation

REACTIONS (14)
  - Epstein-Barr virus infection reactivation [Recovered/Resolved]
  - Cystitis haemorrhagic [Recovering/Resolving]
  - Cerebral toxoplasmosis [Recovering/Resolving]
  - BK polyomavirus test positive [Recovering/Resolving]
  - Cytomegalovirus infection reactivation [Recovered/Resolved]
  - Adenovirus reactivation [Recovered/Resolved]
  - Herpes simplex reactivation [Recovering/Resolving]
  - Cytomegalovirus viraemia [Recovering/Resolving]
  - Neurological symptom [Recovered/Resolved]
  - Viral haemorrhagic cystitis [Recovered/Resolved]
  - Brain abscess [Recovered/Resolved]
  - Gastrointestinal viral infection [Recovered/Resolved]
  - Oral herpes [Recovered/Resolved]
  - Staphylococcal bacteraemia [Recovered/Resolved]
